FAERS Safety Report 5019028-6 (Version None)
Quarter: 2006Q2

REPORT INFORMATION
  Report Type: 
  Country: None (occurrence: None)
  Receive Date: 20060530
  Receipt Date: 20060515
  Transmission Date: 20061013
  Serious: Yes (Hospitalization, Other)
  Sender: FDA-Public Use
  Company Number: 2006US-02324

PATIENT
  Age: 21 Year
  Sex: Male

DRUGS (3)
  1. IBUPROFEN [Suspect]
  2. DICLOFENAC POTASSIUM [Suspect]
  3. PENICILLIN [Suspect]

REACTIONS (14)
  - CONDITION AGGRAVATED [None]
  - CROSS SENSITIVITY REACTION [None]
  - DERMATITIS EXFOLIATIVE [None]
  - DIABETIC KETOACIDOSIS [None]
  - DRUG RASH WITH EOSINOPHILIA AND SYSTEMIC SYMPTOMS [None]
  - HEPATITIS [None]
  - HUMAN HERPES VIRUS 6 SEROLOGY POSITIVE [None]
  - HYPERSENSITIVITY [None]
  - LEUKOCYTOSIS [None]
  - LICHENOID KERATOSIS [None]
  - LYMPHOCYTOSIS [None]
  - NORMOCHROMIC NORMOCYTIC ANAEMIA [None]
  - PROTHROMBIN TIME PROLONGED [None]
  - THROMBOCYTOPENIA [None]
